FAERS Safety Report 21721789 (Version 1)
Quarter: 2022Q4

REPORT INFORMATION
  Report Type: Spontaneous
  Country: US (occurrence: US)
  Receive Date: 20221213
  Receipt Date: 20221213
  Transmission Date: 20230113
  Serious: Yes (Hospitalization, Other)
  Sender: FDA-Public Use
  Company Number: US-BRISTOL-MYERS SQUIBB COMPANY-2022-148869

PATIENT
  Age: 66 Year
  Sex: Female
  Weight: 47.63 kg

DRUGS (3)
  1. ELIQUIS [Suspect]
     Active Substance: APIXABAN
     Indication: Cerebrovascular accident prophylaxis
     Route: 048
  2. ELIQUIS [Suspect]
     Active Substance: APIXABAN
     Route: 048
  3. SILDENAFIL [Concomitant]
     Active Substance: SILDENAFIL
     Indication: Hypertension
     Dosage: INITIALLY TOOK TWO TABLETS THREE TIMES A DAY, BUT HER DOSE KEPT BEING INCREASED.
     Dates: start: 2022

REACTIONS (6)
  - Haematochezia [Unknown]
  - Haemoglobin decreased [Unknown]
  - Hypoacusis [Unknown]
  - Speech disorder [Unknown]
  - Confusional state [Unknown]
  - Intentional product use issue [Unknown]

NARRATIVE: CASE EVENT DATE: 20220101
